FAERS Safety Report 4662076-6 (Version None)
Quarter: 2005Q2

REPORT INFORMATION
  Report Type: 
  Country: None (occurrence: None)
  Receive Date: 20050516
  Receipt Date: 20050506
  Transmission Date: 20051028
  Serious: Yes (Other)
  Sender: FDA-Public Use
  Company Number: US-JNJFOC-20050502994

PATIENT
  Sex: Female

DRUGS (4)
  1. REMICADE [Suspect]
     Route: 042
  2. FUROSEMIDE [Concomitant]
  3. ZOLOFT [Concomitant]
  4. ZYRTEC [Concomitant]

REACTIONS (1)
  - PSORIASIS [None]
